FAERS Safety Report 18041346 (Version 4)
Quarter: 2020Q3

REPORT INFORMATION
  Report Type: Report from Study
  Country: HU (occurrence: HU)
  Receive Date: 20200719
  Receipt Date: 20200827
  Transmission Date: 20201103
  Serious: Yes (Other)
  Sender: FDA-Public Use
  Company Number: NVSC2020HU199216

PATIENT
  Age: 46 Year
  Sex: Female
  Weight: 106 kg

DRUGS (3)
  1. TASIGNA [Suspect]
     Active Substance: NILOTINIB
     Indication: CHRONIC MYELOID LEUKAEMIA
     Dosage: 300 MG, BID
     Route: 048
     Dates: start: 20191109, end: 20200305
  2. TASIGNA [Suspect]
     Active Substance: NILOTINIB
     Dosage: 300 MG, QD
     Route: 048
     Dates: start: 20200306, end: 20200609
  3. TASIGNA [Suspect]
     Active Substance: NILOTINIB
     Dosage: 150 MG, BID
     Route: 065
     Dates: start: 20200615

REACTIONS (1)
  - Electrocardiogram QT prolonged [Not Recovered/Not Resolved]

NARRATIVE: CASE EVENT DATE: 20200304
